FAERS Safety Report 13553213 (Version 1)
Quarter: 2017Q2

REPORT INFORMATION
  Report Type: Spontaneous
  Country: US (occurrence: US)
  Receive Date: 20170517
  Receipt Date: 20170517
  Transmission Date: 20170830
  Serious: Yes (Hospitalization, Other)
  Sender: FDA-Public Use
  Company Number: US-ZYDUS-015152

PATIENT
  Age: 44 Year
  Sex: Female

DRUGS (2)
  1. TACROLIMUS. [Suspect]
     Active Substance: TACROLIMUS
     Indication: ANTISYNTHETASE SYNDROME
     Route: 065
  2. HYDROXYCHLOROQUINE [Suspect]
     Active Substance: HYDROXYCHLOROQUINE
     Indication: ANTISYNTHETASE SYNDROME
     Route: 065

REACTIONS (10)
  - Rales [Recovered/Resolved]
  - Cough [Recovered/Resolved]
  - Lymphadenopathy [Unknown]
  - Condition aggravated [Unknown]
  - Peripheral T-cell lymphoma unspecified stage IV [Unknown]
  - Lung infiltration [Recovered/Resolved]
  - Respiratory distress [Recovered/Resolved]
  - Dyspnoea [Recovered/Resolved]
  - Respiratory failure [Recovered/Resolved]
  - Lymphadenopathy mediastinal [Unknown]
